FAERS Safety Report 16914765 (Version 3)
Quarter: 2020Q3

REPORT INFORMATION
  Report Type: Spontaneous
  Country: US (occurrence: US)
  Receive Date: 20191014
  Receipt Date: 20200822
  Transmission Date: 20201102
  Serious: Yes (Death, Hospitalization, Other)
  Sender: FDA-Public Use
  Company Number: US-AMGEN INC.-USASP2019168363

PATIENT

DRUGS (1)
  1. ERENUMAB [Suspect]
     Active Substance: ERENUMAB
     Indication: MIGRAINE PROPHYLAXIS
     Dosage: UNK
     Route: 065
     Dates: start: 2018

REACTIONS (62)
  - Small intestinal obstruction [Unknown]
  - Abdominal pain [Unknown]
  - Nausea [Unknown]
  - Chapped lips [Unknown]
  - Pyrexia [Unknown]
  - Bronchitis [Unknown]
  - Urinary tract infection [Unknown]
  - Palpitations [Unknown]
  - Death [Fatal]
  - Abdominal distension [Unknown]
  - Head discomfort [Unknown]
  - Migraine [Unknown]
  - Depression [Unknown]
  - Thyroid function test abnormal [Unknown]
  - Hypertension [Unknown]
  - Hypersensitivity [Unknown]
  - Drug ineffective [Unknown]
  - Abdominal discomfort [Unknown]
  - Diarrhoea [Unknown]
  - Oral discomfort [Unknown]
  - Influenza like illness [Unknown]
  - Heart rate increased [Unknown]
  - Rectal haemorrhage [Unknown]
  - Therapeutic product effect incomplete [Unknown]
  - Headache [Unknown]
  - Dizziness [Unknown]
  - Dyspepsia [Unknown]
  - Mood swings [Unknown]
  - Suicidal ideation [Unknown]
  - Fatigue [Unknown]
  - Arthralgia [Unknown]
  - Insomnia [Unknown]
  - Alopecia [Unknown]
  - Hyperhidrosis [Unknown]
  - Anxiety [Unknown]
  - Weight increased [Unknown]
  - Menstruation irregular [Unknown]
  - Feeling abnormal [Unknown]
  - Urticaria [Unknown]
  - Swollen tongue [Unknown]
  - Muscle spasms [Unknown]
  - Photophobia [Unknown]
  - Phonophobia [Unknown]
  - Acne [Unknown]
  - Pruritus [Unknown]
  - Hirsutism [Unknown]
  - Dry mouth [Unknown]
  - Rash [Unknown]
  - Injection site reaction [Unknown]
  - Vomiting [Unknown]
  - Pain [Unknown]
  - Euphoric mood [Unknown]
  - Hypoaesthesia oral [Unknown]
  - Chest pain [Unknown]
  - Injection site pain [Unknown]
  - Toothache [Unknown]
  - Somnolence [Unknown]
  - Change in sustained attention [Unknown]
  - Upper respiratory tract infection [Unknown]
  - Night sweats [Unknown]
  - Hot flush [Unknown]
  - Constipation [Unknown]
